FAERS Safety Report 20494668 (Version 2)
Quarter: 2022Q2

REPORT INFORMATION
  Report Type: Other
  Country: CA (occurrence: CA)
  Receive Date: 20220221
  Receipt Date: 20220512
  Transmission Date: 20220721
  Serious: Yes (Life-Threatening, Hospitalization, Other)
  Sender: FDA-Public Use
  Company Number: None

PATIENT
  Age: 48 Year
  Sex: Female
  Weight: 102 kg

DRUGS (3)
  1. AMLODIPINE BESYLATE [Suspect]
     Active Substance: AMLODIPINE BESYLATE
     Indication: Hypertension
     Dosage: TOTAL
     Route: 048
  2. PERINDOPRIL [Suspect]
     Active Substance: PERINDOPRIL
     Indication: Hypertension
     Dosage: TOTAL
     Route: 048
  3. NALOXONE [Suspect]
     Active Substance: NALOXONE
     Indication: Shock
     Route: 041

REACTIONS (12)
  - Intentional overdose [Unknown]
  - Hypoxia [Recovered/Resolved]
  - Paralysis [Unknown]
  - Sedation [Unknown]
  - Toxicity to various agents [Unknown]
  - Shock [Recovered/Resolved]
  - Insulin resistance [Recovered/Resolved]
  - Vasoplegia syndrome [Recovered/Resolved]
  - Overdose [Unknown]
  - Hypotension [Recovered/Resolved]
  - Rebound effect [Recovered/Resolved]
  - Impaired insulin secretion [Recovered/Resolved]
